FAERS Safety Report 13570333 (Version 1)
Quarter: 2017Q2

REPORT INFORMATION
  Report Type: Report from Study
  Country: US (occurrence: US)
  Receive Date: 20170522
  Receipt Date: 20170522
  Transmission Date: 20170830
  Serious: Yes (Other)
  Sender: FDA-Public Use
  Company Number: US-BIOGEN-2014BI073448

PATIENT
  Age: 41 Year
  Sex: Female

DRUGS (2)
  1. GABAPENTIN. [Concomitant]
     Active Substance: GABAPENTIN
     Indication: NEUROPATHY PERIPHERAL
     Dosage: TWO TABLETS ORALLY THREE TIMES A DAY
     Route: 048
  2. AVONEX [Suspect]
     Active Substance: INTERFERON BETA-1A
     Indication: MULTIPLE SCLEROSIS
     Route: 030
     Dates: start: 20120517

REACTIONS (14)
  - Abasia [Unknown]
  - Loss of consciousness [Unknown]
  - Swelling [Not Recovered/Not Resolved]
  - Hodgkin^s disease [Not Recovered/Not Resolved]
  - Rib fracture [Unknown]
  - Breast cancer [Unknown]
  - Multiple sclerosis [Not Recovered/Not Resolved]
  - Loss of control of legs [Unknown]
  - Epilepsy [Not Recovered/Not Resolved]
  - Dysstasia [Unknown]
  - Multiple sclerosis relapse [Not Recovered/Not Resolved]
  - Cerebral haemorrhage [Unknown]
  - Fall [Recovered/Resolved]
  - Migraine [Not Recovered/Not Resolved]

NARRATIVE: CASE EVENT DATE: 201407
